FAERS Safety Report 15035516 (Version 1)
Quarter: 2018Q2

REPORT INFORMATION
  Report Type: Spontaneous
  Country: US (occurrence: US)
  Receive Date: 20180620
  Receipt Date: 20180620
  Transmission Date: 20180711
  Serious: Yes (Hospitalization, Other)
  Sender: FDA-Public Use
  Company Number: US-INCYTE CORPORATION-2018IN005832

PATIENT

DRUGS (1)
  1. JAKAFI [Suspect]
     Active Substance: RUXOLITINIB
     Indication: MYELODYSPLASTIC SYNDROME
     Dosage: 10 MG, BID
     Route: 048
     Dates: start: 20180119, end: 201806

REACTIONS (4)
  - Off label use [Unknown]
  - Pneumothorax [Unknown]
  - Haemorrhage [Unknown]
  - Splenomegaly [Unknown]

NARRATIVE: CASE EVENT DATE: 20180119
